FAERS Safety Report 4380538-6 (Version None)
Quarter: 2004Q2

REPORT INFORMATION
  Report Type: 
  Country: None (occurrence: None)
  Receive Date: 20040618
  Receipt Date: 20040512
  Transmission Date: 20050107
  Serious: Yes (Death, Life-Threatening, Hospitalization)
  Sender: FDA-Public Use
  Company Number: JP-MERCK-0405USA00992

PATIENT
  Age: 68 Year
  Sex: Male
  Weight: 90 kg

DRUGS (7)
  1. ATENOLOL [Concomitant]
     Indication: HYPERTENSION
     Route: 065
     Dates: start: 19981115, end: 20040430
  2. DOXAZOSIN MESYLATE [Concomitant]
     Indication: HYPERTENSION
     Route: 065
     Dates: start: 19981115, end: 20040430
  3. COZAAR [Suspect]
     Indication: HYPERTENSION
     Route: 048
     Dates: start: 20010730, end: 20040219
  4. COZAAR [Suspect]
     Route: 048
     Dates: start: 20040220, end: 20040101
  5. COZAAR [Suspect]
     Route: 048
     Dates: start: 20040101, end: 20040101
  6. RANITIDINE HYDROCHLORIDE [Concomitant]
     Route: 065
     Dates: start: 20040430
  7. SPIRONOLACTONE [Concomitant]
     Indication: HYPERTENSION
     Route: 065
     Dates: start: 19981115, end: 20040430

REACTIONS (1)
  - HEPATITIS FULMINANT [None]
